FAERS Safety Report 9805426 (Version 3)
Quarter: 2014Q1

REPORT INFORMATION
  Report Type: Spontaneous
  Country: US (occurrence: US)
  Receive Date: 20140109
  Receipt Date: 20140228
  Transmission Date: 20141002
  Serious: No
  Sender: FDA-Public Use
  Company Number: US-009507513-1401USA002911

PATIENT
  Sex: Female
  Weight: 70.3 kg

DRUGS (2)
  1. DULERA [Suspect]
     Indication: ASTHMA
     Dosage: 2 INHALATIONS TWICE DAILY
     Route: 055
     Dates: start: 201204
  2. ALBUTEROL SULFATE [Concomitant]

REACTIONS (3)
  - Cough [Recovered/Resolved]
  - Medication error [Unknown]
  - Product quality issue [Unknown]
